FAERS Safety Report 6185912-3 (Version None)
Quarter: 2009Q2

REPORT INFORMATION
  Report Type: 
  Country: None (occurrence: None)
  Receive Date: 20090511
  Receipt Date: 20090430
  Transmission Date: 20091009
  Serious: Yes (Hospitalization)
  Sender: FDA-Public Use
  Company Number: US-ELI_LILLY_AND_COMPANY-US200905000099

PATIENT
  Sex: Female
  Weight: 35.9 kg

DRUGS (1)
  1. SOMATROPIN [Suspect]
     Indication: GROWTH HORMONE DEFICIENCY
     Dosage: 1.8 MG, DAILY (1/D)
     Route: 058
     Dates: start: 20081114

REACTIONS (1)
  - MIGRAINE [None]
